FAERS Safety Report 9036724 (Version 1)
Quarter: 2013Q1

REPORT INFORMATION
  Report Type: Spontaneous
  Country: US (occurrence: None)
  Receive Date: 20130123
  Receipt Date: 20130123
  Transmission Date: 20140127
  Serious: Yes (Other)
  Sender: FDA-Public Use
  Company Number: None

PATIENT
  Age: 79 Year
  Sex: Male

DRUGS (4)
  1. BICALUTAMIDE, 50 MG, TEVA [Suspect]
     Indication: PROSTATE CANCER METASTATIC
     Dates: start: 20110419, end: 20130116
  2. LUPRON [Concomitant]
  3. CASODEX [Concomitant]
  4. BICALUTAMIDE [Concomitant]

REACTIONS (6)
  - Headache [None]
  - Local swelling [None]
  - Dizziness [None]
  - Insomnia [None]
  - Constipation [None]
  - Hyperhidrosis [None]
